FAERS Safety Report 19399295 (Version 1)
Quarter: 2021Q2

REPORT INFORMATION
  Report Type: Spontaneous
  Country: US (occurrence: US)
  Receive Date: 20210610
  Receipt Date: 20210610
  Transmission Date: 20210717
  Serious: No
  Sender: FDA-Public Use
  Company Number: US-ASTRAZENECA-2021A435056

PATIENT
  Sex: Female

DRUGS (3)
  1. JANUVIA [Concomitant]
     Active Substance: SITAGLIPTIN PHOSPHATE
  2. METFORMIN [Concomitant]
     Active Substance: METFORMIN HYDROCHLORIDE
  3. BYDUREON BCISE [Suspect]
     Active Substance: EXENATIDE
     Dosage: 2.0MG UNKNOWN
     Route: 058

REACTIONS (9)
  - Injection site haemorrhage [Unknown]
  - Device leakage [Unknown]
  - Drug ineffective [Unknown]
  - Injection site mass [Unknown]
  - Injection site pain [Unknown]
  - Device malfunction [Unknown]
  - Device use issue [Unknown]
  - Device issue [Unknown]
  - Wrong technique in device usage process [Unknown]
